FAERS Safety Report 9540770 (Version 1)
Quarter: 2013Q3

REPORT INFORMATION
  Report Type: Report from Study
  Country: US (occurrence: US)
  Receive Date: 20130920
  Receipt Date: 20130920
  Transmission Date: 20140515
  Serious: Yes (Hospitalization)
  Sender: FDA-Public Use
  Company Number: US-BRISTOL-MYERS SQUIBB COMPANY-19426097

PATIENT
  Age: 75 Year
  Sex: Male

DRUGS (3)
  1. CISPLATIN [Suspect]
     Indication: METASTATIC SQUAMOUS CELL CARCINOMA
     Dates: start: 20121129
  2. TAXOL [Suspect]
     Indication: METASTATIC SQUAMOUS CELL CARCINOMA
     Dates: start: 20121129
  3. TEMSIROLIMUS [Suspect]
     Indication: METASTATIC SQUAMOUS CELL CARCINOMA
     Dates: start: 20121129

REACTIONS (2)
  - Fatigue [Unknown]
  - Dyspnoea [Recovering/Resolving]
